FAERS Safety Report 14949178 (Version 7)
Quarter: 2018Q3

REPORT INFORMATION
  Report Type: Spontaneous
  Country: HU (occurrence: HU)
  Receive Date: 20180529
  Receipt Date: 20180906
  Transmission Date: 20181010
  Serious: Yes (Life-Threatening, Hospitalization, Other)
  Sender: FDA-Public Use
  Company Number: HU-PFIZER INC-2018212437

PATIENT
  Age: 64 Year
  Sex: Female

DRUGS (2)
  1. FLUCONAZOLE. [Suspect]
     Active Substance: FLUCONAZOLE
     Indication: FUNGAL INFECTION
     Dosage: 400 MG, 1X/DAY
     Dates: start: 20130505
  2. TIENAM [Suspect]
     Active Substance: CILASTATIN SODIUM\IMIPENEM
     Indication: UROSEPSIS
     Dosage: 500 MG, 3X/DAY
     Dates: start: 20130505, end: 201305

REACTIONS (6)
  - Hepatitis fulminant [Recovered/Resolved]
  - Blood albumin decreased [Recovered/Resolved]
  - Cholestasis [Recovered/Resolved]
  - Oedema [Recovered/Resolved]
  - Hepatotoxicity [Recovered/Resolved]
  - Jaundice [Recovered/Resolved]

NARRATIVE: CASE EVENT DATE: 201305
